FAERS Safety Report 7388827-8 (Version None)
Quarter: 2011Q2

REPORT INFORMATION
  Report Type: 
  Country: None (occurrence: None)
  Receive Date: 20110401
  Receipt Date: 20110321
  Transmission Date: 20111010
  Serious: Yes (Disabling, Other)
  Sender: FDA-Public Use
  Company Number: US-BAXTER-2007BH000625

PATIENT
  Age: 67 Year
  Sex: Female
  Weight: 79 kg

DRUGS (21)
  1. PHENERGAN HCL [Suspect]
     Indication: NAUSEA
     Route: 042
     Dates: start: 20050112, end: 20050112
  2. PHENERGAN HCL [Suspect]
     Route: 042
     Dates: start: 20050114, end: 20050114
  3. ROBAXIN [Concomitant]
     Indication: PRODUCT USED FOR UNKNOWN INDICATION
     Route: 065
  4. PHENERGAN HCL [Suspect]
     Route: 042
     Dates: start: 20050113, end: 20050113
  5. PHENERGAN HCL [Suspect]
     Route: 042
     Dates: start: 20050114, end: 20050114
  6. DEMEROL [Suspect]
     Indication: PAIN
     Route: 042
     Dates: start: 20050112, end: 20050115
  7. PHENERGAN HCL [Suspect]
     Route: 042
     Dates: start: 20050115, end: 20050115
  8. PHENERGAN HCL [Suspect]
     Route: 042
     Dates: start: 20050113, end: 20050113
  9. HUMULIN R [Concomitant]
     Indication: BLOOD GLUCOSE
     Route: 058
     Dates: start: 20050126
  10. PHENERGAN HCL [Suspect]
     Route: 042
     Dates: start: 20050115, end: 20050115
  11. PHENERGAN HCL [Suspect]
     Route: 042
     Dates: start: 20050116, end: 20050116
  12. GLUCOSE [Concomitant]
     Indication: PRODUCT USED FOR UNKNOWN INDICATION
     Route: 065
     Dates: start: 20050126
  13. XANAX [Concomitant]
     Indication: PRODUCT USED FOR UNKNOWN INDICATION
     Route: 048
     Dates: start: 20050112, end: 20050118
  14. DOCUSATE SODIUM [Concomitant]
     Indication: PRODUCT USED FOR UNKNOWN INDICATION
     Route: 048
     Dates: start: 20050112
  15. PHENERGAN HCL [Suspect]
     Route: 042
     Dates: start: 20050114, end: 20050114
  16. PHENERGAN HCL [Suspect]
     Route: 042
     Dates: start: 20050115, end: 20050115
  17. VICODIN [Concomitant]
     Indication: PRODUCT USED FOR UNKNOWN INDICATION
     Route: 048
  18. PHENERGAN HCL [Suspect]
     Route: 042
     Dates: start: 20050115, end: 20050115
  19. REPAGLINIDE [Concomitant]
     Indication: PRODUCT USED FOR UNKNOWN INDICATION
     Route: 048
     Dates: start: 20050112
  20. DEMEROL [Concomitant]
     Indication: PRODUCT USED FOR UNKNOWN INDICATION
     Route: 042
     Dates: start: 20050112, end: 20050119
  21. FLONASE [Concomitant]
     Indication: PRODUCT USED FOR UNKNOWN INDICATION
     Route: 045

REACTIONS (7)
  - PNEUMONIA [None]
  - SKIN NECROSIS [None]
  - ACTIVITIES OF DAILY LIVING IMPAIRED [None]
  - INFUSION SITE EXTRAVASATION [None]
  - STAPHYLOCOCCAL INFECTION [None]
  - ATRIAL FIBRILLATION [None]
  - STAPHYLOCOCCAL BACTERAEMIA [None]
